FAERS Safety Report 7071643-4 (Version None)
Quarter: 2010Q4

REPORT INFORMATION
  Report Type: 
  Country: None (occurrence: None)
  Receive Date: 20101029
  Receipt Date: 20091001
  Transmission Date: 20110411
  Serious: No
  Sender: FDA-Public Use
  Company Number: A0809946A

PATIENT
  Age: 39 Year
  Sex: Female

DRUGS (3)
  1. ADVAIR DISKUS 100/50 [Suspect]
     Indication: ASTHMA
     Dosage: 1PUFF TWICE PER DAY
     Route: 055
     Dates: start: 20080201
  2. PROAIR HFA [Concomitant]
  3. AMOXICILLIN [Concomitant]

REACTIONS (7)
  - CHILLS [None]
  - FALL [None]
  - IMPAIRED HEALING [None]
  - PAIN IN EXTREMITY [None]
  - SWELLING [None]
  - TOOTHACHE [None]
  - TREMOR [None]
